FAERS Safety Report 5928916-5 (Version None)
Quarter: 2008Q4

REPORT INFORMATION
  Report Type: 
  Country: None (occurrence: None)
  Receive Date: 20081024
  Receipt Date: 20081023
  Transmission Date: 20090506
  Serious: Yes (Life-Threatening, Hospitalization)
  Sender: FDA-Public Use
  Company Number: PHHO2001ES01156

PATIENT
  Sex: Male
  Weight: 70 kg

DRUGS (3)
  1. NEORAL [Suspect]
     Indication: LIVER TRANSPLANT
  2. PLACEBO PLACEBO [Suspect]
     Indication: LIVER TRANSPLANT
     Dosage: 20 MG, ONCE/SINGLE
     Dates: start: 20001216, end: 20001216
  3. PLACEBO PLACEBO [Suspect]
     Dosage: 20 MG, ONCE/SINGLE
     Dates: start: 20001220, end: 20001220

REACTIONS (8)
  - APHASIA [None]
  - CENTRAL PONTINE MYELINOLYSIS [None]
  - DEPRESSED LEVEL OF CONSCIOUSNESS [None]
  - ENCEPHALOPATHY [None]
  - HYPERNATRAEMIA [None]
  - MOBILITY DECREASED [None]
  - NEUROTOXICITY [None]
  - RESPIRATORY DISORDER [None]
